FAERS Safety Report 13737524 (Version 2)
Quarter: 2017Q3

REPORT INFORMATION
  Report Type: Spontaneous
  Country: FR (occurrence: FR)
  Receive Date: 20170710
  Receipt Date: 20170714
  Transmission Date: 20171127
  Serious: Yes (Hospitalization)
  Sender: FDA-Public Use
  Company Number: FR-PFIZER INC-2017291588

PATIENT
  Age: 56 Year
  Sex: Male

DRUGS (11)
  1. VINCRISTINE SULFATE. [Suspect]
     Active Substance: VINCRISTINE SULFATE
     Dosage: 1.5 MG/M2, CYCLIC (ON D1, D8, D15 AND D22)
     Route: 042
     Dates: start: 198810
  2. AMSACRINE [Suspect]
     Active Substance: AMSACRINE
     Dosage: 1 G, DAILY (FROM D1 TO D3)
     Route: 042
     Dates: start: 19891128
  3. ENDOXAN /00021101/ [Suspect]
     Active Substance: CYCLOPHOSPHAMIDE
     Dosage: 600 MG/M2, CYCLIC (AT D1 AND D8)
     Route: 042
     Dates: start: 198810
  4. DAUNORUBICIN HCL [Suspect]
     Active Substance: DAUNORUBICIN HYDROCHLORIDE
     Dosage: 60 MG/M2, CYCLIC (ON D1)
     Route: 042
     Dates: start: 198901, end: 198903
  5. INTERLEUKIN-2 [Suspect]
     Active Substance: ALDESLEUKIN
     Dosage: UNK, 5 ADMINISTRATIONS
     Route: 042
     Dates: start: 1989
  6. ASPARAGINASE [Suspect]
     Active Substance: ASPARAGINASE
     Dosage: 1000 IU/KG, CYCLIC (FROM D8 TO D22)
     Route: 042
     Dates: start: 198901, end: 198903
  7. VINCRISTINE SULFATE. [Suspect]
     Active Substance: VINCRISTINE SULFATE
     Dosage: 2 MG, CYCLIC (ON D1 AND D8)
     Route: 042
     Dates: start: 198904, end: 198904
  8. ENDOXAN /00021101/ [Suspect]
     Active Substance: CYCLOPHOSPHAMIDE
     Dosage: 750 MG/M2, UNK
     Route: 042
     Dates: start: 198904, end: 198905
  9. ARACYTINE [Suspect]
     Active Substance: CYTARABINE
     Dosage: 60 MG/M2, CYCLIC (FROM D3 TO D7)
     Route: 042
     Dates: start: 19890107, end: 198903
  10. DAUNORUBICIN HCL [Suspect]
     Active Substance: DAUNORUBICIN HYDROCHLORIDE
     Dosage: 50 MG/M2, CYCLIC (FROM D1 TO D3)
     Route: 042
     Dates: start: 198810
  11. ARACYTINE [Suspect]
     Active Substance: CYTARABINE
     Dosage: 500 MG/M2, CYCLIC (FROM D1 TO D4)
     Route: 042
     Dates: start: 19891128, end: 198911

REACTIONS (2)
  - Acute biphenotypic leukaemia [Not Recovered/Not Resolved]
  - Second primary malignancy [Not Recovered/Not Resolved]

NARRATIVE: CASE EVENT DATE: 201702
